FAERS Safety Report 8948718 (Version 3)
Quarter: 2013Q1

REPORT INFORMATION
  Report Type: Spontaneous
  Country: US (occurrence: US)
  Receive Date: 20121206
  Receipt Date: 20130205
  Transmission Date: 20140127
  Serious: Yes (Other)
  Sender: FDA-Public Use
  Company Number: PHEH2012US023981

PATIENT
  Age: 41 None
  Sex: Female
  Weight: 54.69 kg

DRUGS (7)
  1. GILENYA [Suspect]
     Indication: RELAPSING-REMITTING MULTIPLE SCLEROSIS
     Dosage: 0.5 MG, QD
     Route: 048
     Dates: start: 20120407, end: 20121203
  2. MELATONIN [Concomitant]
     Route: 048
  3. HYDROXYCHLOROQUINE [Concomitant]
     Dosage: 1 DF, QD
     Route: 048
  4. VESICARE [Concomitant]
     Dosage: 1 DF, QD
  5. TRIFLEX                            /01550301/ [Concomitant]
     Dosage: 1 DF, QD
  6. ZINC [Concomitant]
     Dosage: 50 MG, QD
  7. FISH OIL [Concomitant]
     Dosage: 1200 MG, QD

REACTIONS (16)
  - Atypical pneumonia [Unknown]
  - Asthma [Unknown]
  - Cough [Recovering/Resolving]
  - Wheezing [Recovering/Resolving]
  - Rhonchi [Unknown]
  - Increased upper airway secretion [Not Recovered/Not Resolved]
  - Central nervous system lesion [Unknown]
  - Nephrolithiasis [Unknown]
  - Fatigue [Recovering/Resolving]
  - Neutrophil count increased [Unknown]
  - Heart rate increased [Unknown]
  - Blood pressure increased [Unknown]
  - Bronchitis [Unknown]
  - Viral infection [Unknown]
  - Dizziness [Recovering/Resolving]
  - Lymphocyte count decreased [Unknown]
